FAERS Safety Report 12084287 (Version 1)
Quarter: 2016Q1

REPORT INFORMATION
  Report Type: Spontaneous
  Country: US (occurrence: None)
  Receive Date: 20160216
  Receipt Date: 20160216
  Transmission Date: 20160526
  Serious: Yes (Disabling, Other)
  Sender: FDA-Public Use
  Company Number: None

PATIENT
  Age: 75 Year
  Sex: Male

DRUGS (23)
  1. CARAFRATE [Concomitant]
  2. FOLIC ACID. [Concomitant]
     Active Substance: FOLIC ACID
  3. NAPROXEN SODIUM. [Concomitant]
     Active Substance: NAPROXEN SODIUM
  4. ZETIA [Concomitant]
     Active Substance: EZETIMIBE
  5. TAMSULOSIN [Concomitant]
     Active Substance: TAMSULOSIN
  6. TRAMADOL. [Concomitant]
     Active Substance: TRAMADOL
  7. CLOPIDOGREL [Concomitant]
     Active Substance: CLOPIDOGREL BISULFATE
  8. MODAFINIL. [Concomitant]
     Active Substance: MODAFINIL
  9. ASPIRIN. [Concomitant]
     Active Substance: ASPIRIN
  10. MULTIVITAMIN [Concomitant]
     Active Substance: VITAMINS
  11. UBIQUINOL [Concomitant]
     Active Substance: UBIQUINOL
  12. ADVAIR HFA [Concomitant]
     Active Substance: FLUTICASONE PROPIONATE\SALMETEROL XINAFOATE
  13. DONEPEZIL. [Concomitant]
     Active Substance: DONEPEZIL
  14. IRON [Concomitant]
     Active Substance: IRON
  15. METOPROLOL. [Concomitant]
     Active Substance: METOPROLOL
  16. ALBUTEROL. [Concomitant]
     Active Substance: ALBUTEROL
  17. CYANOCOBALAMIN. [Concomitant]
     Active Substance: CYANOCOBALAMIN
  18. GABAPENTIN. [Concomitant]
     Active Substance: GABAPENTIN
  19. CALCIUM [Concomitant]
     Active Substance: CALCIUM
  20. ATORVASTATIN 40 MG LABEL LOST [Suspect]
     Active Substance: ATORVASTATIN
     Indication: CORONARY ARTERIAL STENT INSERTION
     Dosage: 1 TABLET, ONCE DAILY, TAKEN BY MOUTH
     Dates: start: 20150507, end: 20150731
  21. AMLODIPINE [Concomitant]
     Active Substance: AMLODIPINE BESYLATE
  22. CEVIMELINE. [Concomitant]
     Active Substance: CEVIMELINE
  23. VENLAFAXINE [Concomitant]
     Active Substance: VENLAFAXINE HYDROCHLORIDE

REACTIONS (15)
  - Delirium [None]
  - Gait disturbance [None]
  - Intermittent claudication [None]
  - Dehydration [None]
  - Liver disorder [None]
  - Nephrolithiasis [None]
  - Bladder spasm [None]
  - Rhabdomyolysis [None]
  - Arthralgia [None]
  - Peripheral artery stenosis [None]
  - Activities of daily living impaired [None]
  - Pain [None]
  - Pneumonia [None]
  - Nerve injury [None]
  - Renal disorder [None]

NARRATIVE: CASE EVENT DATE: 20150531
